FAERS Safety Report 9672335 (Version 1)
Quarter: 2013Q4

REPORT INFORMATION
  Report Type: Spontaneous
  Country: US (occurrence: None)
  Receive Date: 20131105
  Receipt Date: 20131105
  Transmission Date: 20140711
  Serious: Yes (Other)
  Sender: FDA-Public Use
  Company Number: 2013AP009331

PATIENT
  Age: 69 Year
  Sex: Male

DRUGS (3)
  1. SILDENAFIL (SILDENAFIL) [Suspect]
     Route: 048
     Dates: start: 20130823, end: 20130823
  2. OMNIC (TAMULOSIN HYDROCHLORIDE) [Concomitant]
  3. EMCONCOR (BISPROLOL FUMARATE) [Concomitant]

REACTIONS (2)
  - Nervousness [None]
  - Nonspecific reaction [None]
